FAERS Safety Report 10375322 (Version 3)
Quarter: 2014Q3

REPORT INFORMATION
  Report Type: Spontaneous
  Country: IN (occurrence: None)
  Receive Date: 20140806
  Receipt Date: 20140822
  Transmission Date: 20150326
  Serious: Yes (Hospitalization)
  Sender: FDA-Public Use
  Company Number: AUR-APL-2014-08398

PATIENT
  Age: 19 Year
  Sex: Male

DRUGS (17)
  1. ONDANSETRON. [Suspect]
     Active Substance: ONDANSETRON
  2. CLONAZEPAM. [Suspect]
     Active Substance: CLONAZEPAM
     Indication: HALLUCINATION
  3. CLONAZEPAM. [Suspect]
     Active Substance: CLONAZEPAM
     Indication: DELUSION
  4. ONDANSETRON. [Suspect]
     Active Substance: ONDANSETRON
     Indication: HALLUCINATION
  5. ONDANSETRON. [Suspect]
     Active Substance: ONDANSETRON
     Indication: DELUSION
  6. LITHIUM [Suspect]
     Active Substance: LITHIUM CARBONATE
     Indication: HALLUCINATION
  7. LITHIUM [Suspect]
     Active Substance: LITHIUM CARBONATE
  8. DIVALPROEX (VALPROATE) UNKNOWN, UNKNOWN [Suspect]
     Active Substance: DIVALPROEX SODIUM
     Indication: DELUSION
  9. DIVALPROEX (VALPROATE) UNKNOWN, UNKNOWN [Suspect]
     Active Substance: DIVALPROEX SODIUM
  10. LITHIUM [Suspect]
     Active Substance: LITHIUM CARBONATE
     Indication: DELUSION
  11. OLANZAPINE (OLANZAPINE) [Suspect]
     Active Substance: OLANZAPINE
  12. OLANZAPINE (OLANZAPINE) [Suspect]
     Active Substance: OLANZAPINE
     Indication: HALLUCINATION
  13. CLONAZEPAM. [Suspect]
     Active Substance: CLONAZEPAM
  14. RISPERIDONE. [Suspect]
     Active Substance: RISPERIDONE
     Indication: HALLUCINATION
     Dosage: UNKNOWN
  15. OLANZAPINE (OLANZAPINE) [Suspect]
     Active Substance: OLANZAPINE
     Indication: DELUSION
  16. RISPERIDONE. [Suspect]
     Active Substance: RISPERIDONE
     Indication: DELUSION
     Dosage: UNKNOWN
  17. DIVALPROEX (VALPROATE) UNKNOWN, UNKNOWN [Suspect]
     Active Substance: DIVALPROEX SODIUM
     Indication: HALLUCINATION

REACTIONS (31)
  - Condition aggravated [None]
  - Tetany [None]
  - White blood cell count increased [None]
  - Blood creatine phosphokinase increased [None]
  - Haemoglobin decreased [None]
  - Aggression [None]
  - Movement disorder [None]
  - Diarrhoea [None]
  - Hyperreflexia [None]
  - Hypocalcaemia [None]
  - Tachypnoea [None]
  - Red blood cell sedimentation rate increased [None]
  - C-reactive protein increased [None]
  - Serotonin syndrome [None]
  - Hypophagia [None]
  - Chills [None]
  - Unresponsive to stimuli [None]
  - Tachycardia [None]
  - Clonus [None]
  - Blood calcium decreased [None]
  - Blood iron decreased [None]
  - Muscle rigidity [None]
  - Gastrointestinal sounds abnormal [None]
  - Off label use [None]
  - Neuroleptic malignant syndrome [None]
  - Pyrexia [None]
  - Hyperhidrosis [None]
  - Agitation [None]
  - Transaminases increased [None]
  - Immobile [None]
  - Pneumonia aspiration [None]
